FAERS Safety Report 7150218-2 (Version None)
Quarter: 2010Q4

REPORT INFORMATION
  Report Type: 
  Country: None (occurrence: None)
  Receive Date: 20101124
  Receipt Date: 20100908
  Transmission Date: 20110411
  Serious: No
  Sender: FDA-Public Use
  Company Number: 2010VX001468

PATIENT
  Age: 46 Year
  Sex: Female

DRUGS (1)
  1. ACANYA [Suspect]
     Indication: ACNE
     Dosage: 1 DF;QD;TOP
     Route: 061
     Dates: start: 20100710

REACTIONS (2)
  - BURNING SENSATION [None]
  - PRURITUS [None]
